FAERS Safety Report 10321344 (Version 2)
Quarter: 2015Q1

REPORT INFORMATION
  Report Type: Other
  Country: US (occurrence: US)
  Receive Date: 20140719
  Receipt Date: 20150323
  Transmission Date: 20150720
  Serious: Yes (Hospitalization, Other)
  Sender: FDA-Public Use
  Company Number: US-GSKPPD-2014GSK029348

PATIENT
  Age: 57 Year
  Sex: Male

DRUGS (3)
  1. COREG [Concomitant]
     Active Substance: CARVEDILOL
  2. AVANDIA [Suspect]
     Active Substance: ROSIGLITAZONE MALEATE
     Indication: DIABETES MELLITUS
     Dosage: AVANDIA WAS NOT LISTED AMONG THE PATIENTS DISCHARGE RECORDS REVIEWED.
     Route: 048
  3. DIOVAN/HYDROCHLOROTHIAZIDE [Concomitant]
     Dosage: UNIT DOSE: 160/12.5 MG

REACTIONS (1)
  - Cardiac failure congestive [Recovered/Resolved]

NARRATIVE: CASE EVENT DATE: 20050609
